FAERS Safety Report 9772812 (Version 2)
Quarter: 2014Q1

REPORT INFORMATION
  Report Type: Spontaneous
  Country: US (occurrence: US)
  Receive Date: 20131219
  Receipt Date: 20140204
  Transmission Date: 20141002
  Serious: No
  Sender: FDA-Public Use
  Company Number: US-GILEAD-2013-0090153

PATIENT
  Age: 71 Year
  Sex: Female

DRUGS (12)
  1. LETAIRIS [Suspect]
     Indication: PULMONARY HYPERTENSION
     Dosage: 5 MG, QD
     Route: 048
     Dates: start: 20131025
  2. LETAIRIS [Suspect]
     Indication: SYSTEMIC SCLEROSIS
  3. PROZAC [Concomitant]
  4. URSODIOL [Concomitant]
  5. SYMBICORT [Concomitant]
  6. VENTOLIN HFA [Concomitant]
  7. SYNTHROID [Concomitant]
  8. MICARDIS [Concomitant]
  9. LASIX                              /00032601/ [Concomitant]
  10. PANTOPRAZOLE SODIUM [Concomitant]
  11. PRESERVISION AREDS [Concomitant]
  12. MULTIVITAMINS [Concomitant]

REACTIONS (2)
  - Malaise [Unknown]
  - Dyspnoea [Recovered/Resolved]
